FAERS Safety Report 21883638 (Version 1)
Quarter: 2023Q1

REPORT INFORMATION
  Report Type: Spontaneous
  Country: US (occurrence: US)
  Receive Date: 20230119
  Receipt Date: 20230119
  Transmission Date: 20230418
  Serious: Yes (Hospitalization, Other)
  Sender: FDA-Public Use
  Company Number: US-AMGEN-USASP2023004555

PATIENT
  Age: 63 Year
  Sex: Female

DRUGS (4)
  1. ROMIPLOSTIM [Suspect]
     Active Substance: ROMIPLOSTIM
     Indication: Immune thrombocytopenia
     Dosage: (DOSE RANGE 2-10 MCG/KG), QWK
     Route: 065
  2. ROMIPLOSTIM [Suspect]
     Active Substance: ROMIPLOSTIM
     Dosage: (DOSE RANGE 2-10 MCG/KG), QWK
     Route: 065
  3. RITUXIMAB [Concomitant]
     Active Substance: RITUXIMAB
     Indication: Immune thrombocytopenia
     Dosage: 375 MILLIGRAM/M^2X 4 DOSES
     Route: 040
  4. RITUXIMAB [Concomitant]
     Active Substance: RITUXIMAB
     Indication: Thrombocytopenia

REACTIONS (7)
  - Embolism venous [Recovered/Resolved]
  - Mucocutaneous haemorrhage [Recovered/Resolved]
  - Gastrointestinal haemorrhage [Recovered/Resolved]
  - Haemoptysis [Unknown]
  - Peripheral embolism [Recovered/Resolved]
  - Thrombocytopenia [Recovered/Resolved]
  - Therapy non-responder [Unknown]
